FAERS Safety Report 20650452 (Version 2)
Quarter: 2022Q2

REPORT INFORMATION
  Report Type: Report from Study
  Country: US (occurrence: US)
  Receive Date: 20220329
  Receipt Date: 20220407
  Transmission Date: 20220721
  Serious: Yes (Other)
  Sender: FDA-Public Use
  Company Number: US-OTSUKA-2022_020672

PATIENT
  Sex: Male
  Weight: 54.42 kg

DRUGS (1)
  1. CEDAZURIDINE\DECITABINE [Suspect]
     Active Substance: CEDAZURIDINE\DECITABINE
     Indication: Myelodysplastic syndrome
     Dosage: 1 DF (35-100 MG), QD ON DAYS 1-5 EACH 28 DAY CYCLE
     Route: 048
     Dates: start: 20220314, end: 20220401

REACTIONS (2)
  - Transfusion [Unknown]
  - Fatigue [Unknown]
